FAERS Safety Report 4833010-0 (Version None)
Quarter: 2005Q4

REPORT INFORMATION
  Report Type: 
  Country: None (occurrence: None)
  Receive Date: 20051117
  Receipt Date: 20051031
  Transmission Date: 20060501
  Serious: Yes (Hospitalization)
  Sender: FDA-Public Use
  Company Number: 2005-02253

PATIENT
  Age: 51 Year
  Sex: Male
  Weight: 82.5 kg

DRUGS (1)
  1. VELCADE [Suspect]
     Indication: MULTIPLE MYELOMA
     Dosage: 2.50 MG, INTRAVNEOUS
     Route: 042
     Dates: start: 20050927

REACTIONS (1)
  - HERPES ZOSTER DISSEMINATED [None]
